FAERS Safety Report 10082204 (Version 2)
Quarter: 2014Q2

REPORT INFORMATION
  Report Type: Report from Study
  Country: NL (occurrence: NL)
  Receive Date: 20140416
  Receipt Date: 20140516
  Transmission Date: 20141212
  Serious: Yes (Hospitalization)
  Sender: FDA-Public Use
  Company Number: NL-BAXTER-2014BAX018425

PATIENT
  Age: 52 Year
  Sex: Female

DRUGS (4)
  1. KIOVIG 100 MG/ML OPLOSSING VOOR INFUSIE (20 G/200 ML) [Suspect]
     Indication: MULTIPLE SCLEROSIS
     Route: 042
     Dates: start: 20140327, end: 20140327
  2. KIOVIG 100 MG/ML OPLOSSING VOOR INFUSIE (20 G/200 ML) [Suspect]
     Indication: OFF LABEL USE
     Route: 042
  3. KIOVIG 100 MG/ML OPLOSSING VOOR INFUSIE (5 G/50 ML) [Suspect]
     Indication: MULTIPLE SCLEROSIS
     Route: 042
     Dates: start: 20140327, end: 20140327
  4. KIOVIG 100 MG/ML OPLOSSING VOOR INFUSIE (5 G/50 ML) [Suspect]
     Indication: OFF LABEL USE
     Route: 042

REACTIONS (3)
  - Cystitis noninfective [Recovering/Resolving]
  - Pneumonia [Recovering/Resolving]
  - Asthenia [Recovering/Resolving]
